FAERS Safety Report 20077105 (Version 1)
Quarter: 2021Q4

REPORT INFORMATION
  Report Type: Spontaneous
  Country: US (occurrence: US)
  Receive Date: 20211116
  Receipt Date: 20211116
  Transmission Date: 20220303
  Serious: Yes (Hospitalization)
  Sender: FDA-Public Use
  Company Number: US-MYLANLABS-2021M1083607

PATIENT
  Age: 2 Decade
  Sex: Male

DRUGS (2)
  1. METHOTREXATE [Suspect]
     Active Substance: METHOTREXATE
     Indication: Colitis ulcerative
     Dosage: UNK
     Route: 065
  2. INFLIXIMAB [Suspect]
     Active Substance: INFLIXIMAB
     Indication: Colitis ulcerative
     Dosage: 7 WEEK

REACTIONS (7)
  - Influenza [Unknown]
  - Staphylococcal infection [Recovering/Resolving]
  - Streptococcal infection [Recovering/Resolving]
  - Subperiosteal abscess [Recovered/Resolved]
  - Otitis media acute [Recovering/Resolving]
  - Cellulitis [Recovering/Resolving]
  - Nasal septum perforation [Recovered/Resolved]
